FAERS Safety Report 5004459-0 (Version None)
Quarter: 2006Q2

REPORT INFORMATION
  Report Type: 
  Country: None (occurrence: None)
  Receive Date: 20060511
  Receipt Date: 20060503
  Transmission Date: 20061013
  Serious: Yes (Hospitalization, Other)
  Sender: FDA-Public Use
  Company Number: 2004040614

PATIENT
  Age: 47 Year
  Sex: Female
  Weight: 86.1834 kg

DRUGS (11)
  1. TIKOSYN [Suspect]
     Indication: ATRIAL FIBRILLATION
     Dosage: 1000 MCG (500 MCG, 2 IN 1 D), ORAL
     Route: 048
     Dates: start: 20030101
  2. PEG-INTRON [Suspect]
     Indication: ILL-DEFINED DISORDER
  3. WELLBUTRIN [Suspect]
     Indication: ILL-DEFINED DISORDER
     Dates: start: 20030101, end: 20030101
  4. BEXTRA [Concomitant]
  5. TOPROL-XL [Concomitant]
  6. WARFARIN SODIUM [Concomitant]
  7. POTASSIUM [Concomitant]
  8. AXID [Concomitant]
  9. ANTIBIOTICS [Concomitant]
  10. PLAVIX [Concomitant]
  11. AMBIEN [Concomitant]

REACTIONS (9)
  - ANAEMIA [None]
  - ATRIAL FIBRILLATION [None]
  - CHEST PAIN [None]
  - DIZZINESS [None]
  - DRUG EFFECT DECREASED [None]
  - ELECTROCARDIOGRAM QT PROLONGED [None]
  - GALLBLADDER ENLARGEMENT [None]
  - HEPATIC ENZYME INCREASED [None]
  - HYPERHIDROSIS [None]
